FAERS Safety Report 10664627 (Version 1)
Quarter: 2014Q4

REPORT INFORMATION
  Report Type: Spontaneous
  Country: JP (occurrence: JP)
  Receive Date: 20141219
  Receipt Date: 20141219
  Transmission Date: 20150529
  Serious: Yes (Hospitalization)
  Sender: FDA-Public Use
  Company Number: JP-MYLANLABS-2014M1014971

PATIENT

DRUGS (5)
  1. APREPITANT. [Concomitant]
     Active Substance: APREPITANT
     Indication: NAUSEA
     Route: 065
  2. METHOTREXATE [Suspect]
     Active Substance: METHOTREXATE
     Dosage: FOUR COURSES, HIGH-DOSE, IN ACCORDANCE WITH THE JAPAN CLINICAL ONCOLOGY GROUP (JCOG) 0905 PROTOCOL
     Route: 065
  3. CISPLATIN. [Concomitant]
     Active Substance: CISPLATIN
     Indication: OSTEOSARCOMA
     Dosage: TWO COURSES, IN ACCORDANCE WITH THE JAPAN CLINICAL ONCOLOGY GROUP (JCOG) 0905 PROTOCOL
     Route: 065
  4. DOXORUBICIN [Suspect]
     Active Substance: DOXORUBICIN
     Indication: OSTEOSARCOMA
     Dosage: TWO COURSES, IN ACCORDANCE WITH THE JAPAN CLINICAL ONCOLOGY GROUP (JCOG) 0905 PROTOCOL
     Route: 065
  5. DEXAMETHASONE. [Suspect]
     Active Substance: DEXAMETHASONE
     Indication: NAUSEA
     Route: 065

REACTIONS (3)
  - Mucosal inflammation [Recovered/Resolved with Sequelae]
  - Peritonitis [Recovered/Resolved with Sequelae]
  - Intestinal perforation [Recovered/Resolved with Sequelae]
